FAERS Safety Report 11395281 (Version 1)
Quarter: 2015Q3

REPORT INFORMATION
  Report Type: Spontaneous
  Country: US (occurrence: None)
  Receive Date: 20150817
  Receipt Date: 20150817
  Transmission Date: 20151125
  Serious: No
  Sender: FDA-Public Use
  Company Number: None

PATIENT
  Age: 60 Year
  Sex: Female
  Weight: 93.44 kg

DRUGS (4)
  1. GLUCOSAMINE/CHONDROITIN/MSM [Concomitant]
  2. SULFAMETHOXAZOLE TMP DS AUROBINDO PHAMA LTD [Suspect]
     Active Substance: SULFAMETHOXAZOLE\TRIMETHOPRIM
     Indication: SINUSITIS
     Route: 048
  3. EDARBYCLOR [Concomitant]
     Active Substance: AZILSARTAN KAMEDOXOMIL\CHLORTHALIDONE
  4. LATANOPROST. [Concomitant]
     Active Substance: LATANOPROST

REACTIONS (3)
  - Product quality issue [None]
  - Product substitution issue [None]
  - Arrhythmia [None]

NARRATIVE: CASE EVENT DATE: 20150814
